FAERS Safety Report 15159821 (Version 1)
Quarter: 2018Q3

REPORT INFORMATION
  Report Type: Spontaneous
  Country: FR (occurrence: FR)
  Receive Date: 20180718
  Receipt Date: 20180718
  Transmission Date: 20181010
  Serious: Yes (Hospitalization)
  Sender: FDA-Public Use
  Company Number: FR-GLAXOSMITHKLINE-FR2018123248

PATIENT
  Age: 5 Year
  Sex: Male
  Weight: 23 kg

DRUGS (3)
  1. RHINOMAXIL [Suspect]
     Active Substance: BECLOMETHASONE DIPROPIONATE
     Indication: ATOPY
     Dosage: 1 DF, QD
     Route: 045
     Dates: start: 20180619
  2. MIDAZOLAM [Suspect]
     Active Substance: MIDAZOLAM HYDROCHLORIDE
     Indication: ANAESTHETIC PREMEDICATION
     Dosage: 7.5 MG, QD
     Route: 048
     Dates: start: 20180619, end: 20180619
  3. SERETIDE [Suspect]
     Active Substance: FLUTICASONE PROPIONATE\SALMETEROL XINAFOATE
     Indication: ATOPY
     Dosage: 1 DF, QD
     Route: 055
     Dates: start: 20180619

REACTIONS (1)
  - Sedation complication [Recovered/Resolved]

NARRATIVE: CASE EVENT DATE: 20180619
